FAERS Safety Report 13210741 (Version 1)
Quarter: 2017Q1

REPORT INFORMATION
  Report Type: Spontaneous
  Country: BR (occurrence: BR)
  Receive Date: 20170210
  Receipt Date: 20170210
  Transmission Date: 20170428
  Serious: Yes (Other)
  Sender: FDA-Public Use
  Company Number: BR-PFIZER INC-2017048941

PATIENT
  Age: 74 Year
  Sex: Female

DRUGS (7)
  1. MICARDIS [Concomitant]
     Active Substance: TELMISARTAN
     Indication: CARDIAC DISORDER
     Dosage: UNSPECIFIED DOSE, 1X/DAY
     Route: 048
  2. DAFLON /00426001/ [Concomitant]
     Active Substance: DIOSMIN
     Indication: BONE DISORDER
     Dosage: UNSPECIFIED DOSE, 1X/DAY
     Route: 048
     Dates: start: 2013
  3. CALCIUM [Concomitant]
     Active Substance: CALCIUM
     Indication: BONE DISORDER
     Dosage: UNSPECIFIED DOSE, 1X/DAY
     Route: 048
     Dates: start: 2013
  4. XALATAN [Suspect]
     Active Substance: LATANOPROST
     Indication: GLAUCOMA
     Dosage: 2 GTT, 1X/DAY (ONCE A DAY IN BOTH EYES)
     Route: 047
     Dates: start: 20050824
  5. PURAN [Concomitant]
     Active Substance: LEVOTHYROXINE SODIUM
     Indication: THYROID DISORDER
     Dosage: UNSPECIFIED DATE, 1X/DAY
     Route: 048
     Dates: start: 2013
  6. ASPIRINA [Concomitant]
     Active Substance: ASPIRIN
     Indication: CARDIAC DISORDER
     Dosage: UNSPECIFIED DOSE, 2X/DAY
     Dates: start: 2013
  7. ATENOLOL. [Concomitant]
     Active Substance: ATENOLOL
     Indication: CARDIAC DISORDER
     Dosage: UNSPECIFIED DOSE, 2X/DAY
     Route: 048
     Dates: start: 1987

REACTIONS (1)
  - Cataract [Unknown]
